FAERS Safety Report 18197316 (Version 1)
Quarter: 2020Q3

REPORT INFORMATION
  Report Type: Spontaneous
  Country: NO (occurrence: NO)
  Receive Date: 20200826
  Receipt Date: 20200826
  Transmission Date: 20201103
  Serious: Yes (Death)
  Sender: FDA-Public Use
  Company Number: NO-TEVA-2020-NO-1819518

PATIENT
  Age: 49 Year
  Sex: Female

DRUGS (5)
  1. PREDNISOLONE. [Concomitant]
     Active Substance: PREDNISOLONE
  2. CYCLOPHOSPHAMIDE. [Suspect]
     Active Substance: CYCLOPHOSPHAMIDE
     Indication: BREAST CANCER
     Dates: start: 20191213, end: 20200529
  3. AKYNZEO [Concomitant]
     Active Substance: NETUPITANT\PALONOSETRON HYDROCHLORIDE
     Dosage: FOR ACTIVE INGREDIENT NETUPITANT THE STRENGTH IS 300 MILLIGRAM .?FOR ACTIVE INGREDIENT PALONOSETRON
  4. EPIRUBICIN [Suspect]
     Active Substance: EPIRUBICIN
     Indication: BREAST CANCER
     Dosage: EC90 X 4 AND EC60 X 6
     Dates: start: 20191213, end: 20200529
  5. PELGRAZ [Concomitant]
     Active Substance: PEGFILGRASTIM

REACTIONS (1)
  - Hepatic failure [Fatal]

NARRATIVE: CASE EVENT DATE: 202006
